FAERS Safety Report 4337668-4 (Version None)
Quarter: 2004Q1

REPORT INFORMATION
  Report Type: 
  Country: None (occurrence: None)
  Receive Date: 20040329
  Receipt Date: 20040119
  Transmission Date: 20041129
  Serious: No
  Sender: FDA-Public Use
  Company Number: USA031255429

PATIENT
  Age: 11 Year
  Sex: Male
  Weight: 28 kg

DRUGS (3)
  1. STRATTERA [Suspect]
     Indication: ATTENTION DEFICIT/HYPERACTIVITY DISORDER
     Dosage: 40 MG/DAY
     Dates: start: 20030801, end: 20031229
  2. TENEX [Concomitant]
  3. .. [Suspect]

REACTIONS (3)
  - HYPERTENSION [None]
  - TACHYCARDIA [None]
  - VISION BLURRED [None]
